FAERS Safety Report 6122498-3 (Version None)
Quarter: 2009Q1

REPORT INFORMATION
  Report Type: 
  Country: None (occurrence: None)
  Receive Date: 20090318
  Receipt Date: 20090105
  Transmission Date: 20090719
  Serious: No
  Sender: FDA-Public Use
  Company Number: US-ASTRAZENECA-2009UW00329

PATIENT
  Sex: Female

DRUGS (2)
  1. SYMBICORT [Suspect]
     Dosage: 160/4.5 MCG ONE PUFF TWO TIMES A DAY
     Route: 055
     Dates: start: 20081221
  2. ALBUTEROL [Concomitant]

REACTIONS (3)
  - ILL-DEFINED DISORDER [None]
  - NAUSEA [None]
  - VOMITING [None]
